FAERS Safety Report 10380450 (Version 2)
Quarter: 2014Q3

REPORT INFORMATION
  Report Type: Spontaneous
  Country: FR (occurrence: FR)
  Receive Date: 20140813
  Receipt Date: 20140813
  Transmission Date: 20150326
  Serious: Yes (Hospitalization)
  Sender: FDA-Public Use
  Company Number: FR-JNJFOC-20140414717

PATIENT
  Age: 60 Year
  Sex: Male
  Weight: 82 kg

DRUGS (2)
  1. REMICADE [Suspect]
     Active Substance: INFLIXIMAB
     Indication: ANKYLOSING SPONDYLITIS
     Dosage: STARTED YEARS AGO
     Route: 042
     Dates: start: 2014, end: 2014
  2. REMICADE [Suspect]
     Active Substance: INFLIXIMAB
     Indication: ANKYLOSING SPONDYLITIS
     Dosage: STARTED YEARS AGO
     Route: 042
     Dates: start: 2004

REACTIONS (5)
  - Depression [Unknown]
  - Insomnia [Recovering/Resolving]
  - Fatigue [Unknown]
  - Sleep disorder [Unknown]
  - Nervousness [Recovering/Resolving]

NARRATIVE: CASE EVENT DATE: 201310
